FAERS Safety Report 19460100 (Version 2)
Quarter: 2021Q3

REPORT INFORMATION
  Report Type: Spontaneous
  Country: DE (occurrence: DE)
  Receive Date: 20210625
  Receipt Date: 20210827
  Transmission Date: 20211014
  Serious: Yes (Hospitalization, Other)
  Sender: FDA-Public Use
  Company Number: DE-AMGEN-DEUNI2021096535

PATIENT
  Age: 55 Year
  Sex: Male
  Weight: 72 kg

DRUGS (12)
  1. PACLITAXEL. [Suspect]
     Active Substance: PACLITAXEL
     Indication: NON-SMALL CELL LUNG CANCER
     Dosage: 175 MILLIGRAM/SQ. METER (ON 16/DEC/2019, LAST DOSE OF PACLITAXEL WAS)
     Route: 042
     Dates: start: 20190926
  2. DEXAMETHASON [DEXAMETHASONE] [Concomitant]
     Active Substance: DEXAMETHASONE
     Dosage: 36 MILLIGRAM
     Route: 048
     Dates: start: 20190927
  3. DEXAMETHASON [DEXAMETHASONE] [Concomitant]
     Active Substance: DEXAMETHASONE
     Dosage: 24 MILLIGRAM
     Route: 042
     Dates: start: 20190926
  4. GRANISETRON [Concomitant]
     Active Substance: GRANISETRON
     Dosage: 3 MILLIGRAM
     Route: 042
     Dates: start: 20190926
  5. FENISTIL [Concomitant]
     Active Substance: DIMETHINDENE
     Dosage: 4 MILLIGRAM
     Route: 042
     Dates: start: 20190926
  6. GRASTOFIL [Concomitant]
     Active Substance: FILGRASTIM
     Dosage: 48 MILLIGRAM, QD
     Route: 058
     Dates: start: 20191007, end: 20191216
  7. ALLOPURINOL. [Concomitant]
     Active Substance: ALLOPURINOL
     Dosage: 300 MILLIGRAM, QD
     Route: 048
     Dates: start: 20190926
  8. RANITIDIN [Concomitant]
     Active Substance: RANITIDINE HYDROCHLORIDE
     Dosage: 50 MILLIGRAM
     Route: 042
     Dates: start: 20190926
  9. PARACETAMOL [Concomitant]
     Active Substance: ACETAMINOPHEN
     Dosage: 10 GRAM
     Dates: start: 20210514
  10. CARBOPLATIN. [Suspect]
     Active Substance: CARBOPLATIN
     Indication: NON-SMALL CELL LUNG CANCER
     Dosage: DOSE: 5 MG/MIN*MLON 16/DEC/2019, LAST DOSE OF CARBOPLATIN WAS ADMINISTERED.
     Route: 042
     Dates: start: 20190926
  11. BEVACIZUMAB. [Suspect]
     Active Substance: BEVACIZUMAB
     Indication: NON-SMALL CELL LUNG CANCER
     Dosage: 15 MILLIGRAM/KILOGRAM (ON 27/APR/2021, LAST DOSE OF BEVACIZUMAB WAS)
     Route: 042
     Dates: start: 20190926
  12. ATEZOLIZUMAB. [Suspect]
     Active Substance: ATEZOLIZUMAB
     Indication: NON-SMALL CELL LUNG CANCER
     Dosage: 1200 MILLIGRAM (ON 27/APR/2021, LAST DOSE OF ATEZOLIZUMAB WAS )
     Route: 042
     Dates: start: 20190926

REACTIONS (1)
  - Hepatitis [Recovered/Resolved]

NARRATIVE: CASE EVENT DATE: 20210515
